FAERS Safety Report 18883978 (Version 1)
Quarter: 2021Q1

REPORT INFORMATION
  Report Type: Other
  Country: US (occurrence: US)
  Receive Date: 20210211
  Receipt Date: 20210211
  Transmission Date: 20210420
  Serious: Yes (Hospitalization)
  Sender: FDA-Public Use
  Company Number: US-NEUROCRINE BIOSCIENCES INC.-2021NBI00559

PATIENT
  Age: 71 Year
  Sex: Female

DRUGS (6)
  1. ILOPERIDONE. [Concomitant]
     Active Substance: ILOPERIDONE
  2. METFORMIN [Concomitant]
     Active Substance: METFORMIN HYDROCHLORIDE
  3. INGREZZA [Suspect]
     Active Substance: VALBENAZINE
     Indication: PRODUCT USED FOR UNKNOWN INDICATION
     Route: 048
  4. SITAGLIPTIN [Concomitant]
     Active Substance: SITAGLIPTIN
  5. BACLOFEN. [Concomitant]
     Active Substance: BACLOFEN
  6. GLYBURIDE. [Concomitant]
     Active Substance: GLYBURIDE

REACTIONS (2)
  - COVID-19 [Recovered/Resolved]
  - Atrioventricular block complete [Not Recovered/Not Resolved]
